FAERS Safety Report 14254719 (Version 1)
Quarter: 2017Q4

REPORT INFORMATION
  Report Type: Report from Study
  Country: FR (occurrence: FR)
  Receive Date: 20171206
  Receipt Date: 20171206
  Transmission Date: 20180321
  Serious: Yes (Death, Hospitalization, Other)
  Sender: FDA-Public Use
  Company Number: FR-ROCHE-2031522

PATIENT
  Age: 83 Year

DRUGS (1)
  1. RITUXIMAB. [Suspect]
     Active Substance: RITUXIMAB
     Indication: IMMUNE THROMBOCYTOPENIC PURPURA
     Route: 042
     Dates: start: 20110503

REACTIONS (17)
  - Transformation to acute myeloid leukaemia [Fatal]
  - Cardiac failure [Recovered/Resolved]
  - Inguinal hernia strangulated [Recovered/Resolved]
  - Pyrexia [Recovered/Resolved]
  - Monoclonal gammopathy [Unknown]
  - Myelofibrosis [Unknown]
  - Lung infection [Recovered/Resolved]
  - Lung infection [Recovered/Resolved]
  - Infection [Unknown]
  - Myelodysplastic syndrome [Unknown]
  - Urinary tract infection [Recovered/Resolved]
  - Skin infection [Unknown]
  - Inguinal hernia strangulated [Unknown]
  - Pneumocystis jirovecii pneumonia [Unknown]
  - Escherichia bacteraemia [Unknown]
  - Bronchitis [Recovered/Resolved]
  - Enterococcal bacteraemia [Unknown]

NARRATIVE: CASE EVENT DATE: 201411
